FAERS Safety Report 13616947 (Version 1)
Quarter: 2017Q2

REPORT INFORMATION
  Report Type: Spontaneous
  Country: US (occurrence: US)
  Receive Date: 20170606
  Receipt Date: 20170606
  Transmission Date: 20170830
  Serious: No
  Sender: FDA-Public Use
  Company Number: US-SA-2016SA133908

PATIENT
  Sex: Female

DRUGS (2)
  1. LANTUS [Suspect]
     Active Substance: INSULIN GLARGINE
     Indication: DIABETES MELLITUS
     Dosage: DOSE:42 UNIT(S)
     Route: 065
     Dates: start: 2014
  2. GLUCOSE [Concomitant]
     Active Substance: DEXTROSE
     Dosage: DOSE:42 UNIT(S)
     Route: 065

REACTIONS (2)
  - Hypoacusis [Unknown]
  - Incorrect product storage [Unknown]
